FAERS Safety Report 9004590 (Version 1)
Quarter: 2013Q1

REPORT INFORMATION
  Report Type: Spontaneous
  Country: US (occurrence: None)
  Receive Date: 20130103
  Receipt Date: 20130103
  Transmission Date: 20140127
  Serious: Yes (Hospitalization)
  Sender: FDA-Public Use
  Company Number: None

PATIENT
  Age: 70 Year
  Sex: Male
  Weight: 104.3 kg

DRUGS (4)
  1. BORTEZOMIB [Suspect]
     Indication: B-CELL SMALL LYMPHOCYTIC LYMPHOMA
     Dosage: 3.6 MG D1 / D8 IV
     Route: 042
     Dates: start: 20120730, end: 20120806
  2. BORTEZOMIB [Suspect]
     Indication: CHRONIC LYMPHOCYTIC LEUKAEMIA
     Dosage: 3.6 MG D1 / D8 IV
     Route: 042
     Dates: start: 20120730, end: 20120806
  3. TEMSIROLIMUS [Suspect]
     Indication: B-CELL SMALL LYMPHOCYTIC LYMPHOMA
     Dosage: 25 MG D1 / D8 IV
     Route: 042
     Dates: start: 20120730, end: 20120806
  4. TEMSIROLIMUS [Suspect]
     Indication: CHRONIC LYMPHOCYTIC LEUKAEMIA
     Dosage: 25 MG D1 / D8 IV
     Route: 042
     Dates: start: 20120730, end: 20120806

REACTIONS (3)
  - Thrombocytopenia [None]
  - Lobar pneumonia [None]
  - Groin pain [None]
